FAERS Safety Report 7554877-1 (Version None)
Quarter: 2011Q2

REPORT INFORMATION
  Report Type: 
  Country: None (occurrence: None)
  Receive Date: 20110610
  Receipt Date: 20110603
  Transmission Date: 20111010
  Serious: Yes (Life-Threatening)
  Sender: FDA-Public Use
  Company Number: 2010TJ0152FU1

PATIENT
  Age: 19 Year
  Sex: Female

DRUGS (1)
  1. TWINJECT 0.3 [Suspect]
     Indication: HYPERSENSITIVITY
     Dosage: 0.3 MG, AS NEEDED
     Dates: start: 20101019, end: 20101019

REACTIONS (3)
  - NEEDLE ISSUE [None]
  - DEVICE MALFUNCTION [None]
  - PRODUCT QUALITY ISSUE [None]
